FAERS Safety Report 14632621 (Version 1)
Quarter: 2018Q1

REPORT INFORMATION
  Report Type: Spontaneous
  Country: US (occurrence: US)
  Receive Date: 20180313
  Receipt Date: 20180313
  Transmission Date: 20180509
  Serious: No
  Sender: FDA-Public Use
  Company Number: US-MYLANLABS-2018M1012392

PATIENT
  Age: 53 Year
  Sex: Female

DRUGS (2)
  1. GLATIRAMER MYLAN [Suspect]
     Active Substance: GLATIRAMER
     Dosage: UNK
     Route: 058
     Dates: start: 20180214
  2. GLATIRAMER MYLAN [Suspect]
     Active Substance: GLATIRAMER
     Indication: RELAPSING-REMITTING MULTIPLE SCLEROSIS
     Dosage: UNK
     Route: 058
     Dates: start: 20180201

REACTIONS (2)
  - Drug dose omission [Recovered/Resolved]
  - No adverse event [Unknown]

NARRATIVE: CASE EVENT DATE: 20180201
